FAERS Safety Report 9165011 (Version 2)
Quarter: 2013Q1

REPORT INFORMATION
  Report Type: Spontaneous
  Country: US (occurrence: None)
  Receive Date: 20130228
  Receipt Date: 20130314
  Transmission Date: 20140127
  Serious: Yes (Hospitalization)
  Sender: FDA-Public Use
  Company Number: JPI-P-029999

PATIENT
  Age: 51 Year
  Sex: Female

DRUGS (5)
  1. XYREM [Suspect]
     Indication: NARCOLEPSY
     Route: 048
     Dates: start: 200712
  2. XYREM [Suspect]
     Indication: SOMNOLENCE
     Route: 048
     Dates: start: 200712
  3. ARMODAFINIL [Suspect]
     Indication: NARCOLEPSY
     Route: 048
     Dates: end: 201208
  4. ARIPIPRAZOLE [Concomitant]
  5. LORAZEPAM [Concomitant]

REACTIONS (3)
  - Mania [None]
  - Insomnia [None]
  - Affective disorder [None]
